FAERS Safety Report 20462544 (Version 1)
Quarter: 2022Q1

REPORT INFORMATION
  Report Type: Spontaneous
  Country: FR (occurrence: FR)
  Receive Date: 20220211
  Receipt Date: 20220211
  Transmission Date: 20220423
  Serious: Yes (Other)
  Sender: FDA-Public Use
  Company Number: None

PATIENT
  Age: 78 Year
  Sex: Female
  Weight: 77.2 kg

DRUGS (13)
  1. EUPANTOL [Suspect]
     Active Substance: PANTOPRAZOLE SODIUM
     Dosage: 8 MILLIGRAM, Q1HR
     Route: 065
     Dates: start: 20211227
  2. LORMETAZEPAM [Suspect]
     Active Substance: LORMETAZEPAM
     Dosage: 1 MILLIGRAM, QD
     Route: 065
     Dates: start: 20211229
  3. LOVENOX [Suspect]
     Active Substance: ENOXAPARIN SODIUM
     Dosage: 4000 INTERNATIONAL UNIT, QD
     Route: 065
     Dates: start: 2021
  4. AMBISOME [Suspect]
     Active Substance: AMPHOTERICIN B
     Dosage: 200 MILLIGRAM, QD
     Route: 065
     Dates: start: 20211228, end: 20220102
  5. CEFTRIAXONE SODIUM [Suspect]
     Active Substance: CEFTRIAXONE SODIUM
     Dosage: 1 GRAM, QD
     Route: 065
     Dates: start: 20211227, end: 20220102
  6. JANUVIA [Concomitant]
     Active Substance: SITAGLIPTIN PHOSPHATE
     Dosage: UNK
  7. PERFALGAN [Concomitant]
     Active Substance: ACETAMINOPHEN
     Dosage: UNK
  8. ONDANSETRON [Concomitant]
     Active Substance: ONDANSETRON
     Dosage: UNK
  9. CANDESARTAN CILEXETIL [Concomitant]
     Active Substance: CANDESARTAN CILEXETIL
     Dosage: UNK
  10. KARDEGIC [Concomitant]
     Active Substance: ASPIRIN DL-LYSINE
     Dosage: UNK
  11. TAHOR [Concomitant]
     Active Substance: ATORVASTATIN CALCIUM
     Dosage: UNK
  12. TRAMADOL HYDROCHLORIDE [Concomitant]
     Active Substance: TRAMADOL HYDROCHLORIDE
     Dosage: UNK
  13. FLAGYL [Concomitant]
     Active Substance: METRONIDAZOLE\METRONIDAZOLE HYDROCHLORIDE
     Dosage: UNK

REACTIONS (1)
  - Cholestatic liver injury [Not Recovered/Not Resolved]

NARRATIVE: CASE EVENT DATE: 20220101
